FAERS Safety Report 12763227 (Version 1)
Quarter: 2016Q3

REPORT INFORMATION
  Report Type: Spontaneous
  Country: AU (occurrence: AU)
  Receive Date: 20160920
  Receipt Date: 20160920
  Transmission Date: 20161109
  Serious: Yes (Disabling)
  Sender: FDA-Public Use
  Company Number: AU-PFIZER INC-2016424682

PATIENT
  Sex: Female

DRUGS (1)
  1. LYRICA [Suspect]
     Active Substance: PREGABALIN
     Indication: NEURALGIA
     Dosage: 25 MG, 1X/DAY AT NIGHT
     Dates: start: 20160904

REACTIONS (10)
  - Memory impairment [Unknown]
  - Intentional underdose [Unknown]
  - Abasia [Unknown]
  - Drug ineffective [Unknown]
  - Gait disturbance [Unknown]
  - Feeling drunk [Unknown]
  - Headache [Unknown]
  - Disinhibition [Unknown]
  - Impaired driving ability [Unknown]
  - Cognitive disorder [Unknown]
